FAERS Safety Report 8774634 (Version 1)
Quarter: 2012Q4

REPORT INFORMATION
  Report Type: 
  Country: US (occurrence: US)
  Receive Date: 20120907
  Receipt Date: 20120907
  Transmission Date: 20130627
  Serious: Yes (Hospitalization, Other)
  Sender: FDA-Public Use
  Company Number: US-AMGEN-USASP2012056059

PATIENT
  Sex: Female

DRUGS (1)
  1. ENBREL [Suspect]
     Indication: RHEUMATOID ARTHRITIS
     Dosage: 25 UNK, 2 times/wk
     Route: 058
     Dates: start: 20011001

REACTIONS (3)
  - Intestinal obstruction [Recovered/Resolved]
  - Supraventricular tachycardia [Not Recovered/Not Resolved]
  - Weight decreased [Not Recovered/Not Resolved]
